FAERS Safety Report 7617988-8 (Version None)
Quarter: 2011Q3

REPORT INFORMATION
  Report Type: 
  Country: None (occurrence: None)
  Receive Date: 20110718
  Receipt Date: 20110708
  Transmission Date: 20111222
  Serious: Yes (Hospitalization, Other)
  Sender: FDA-Public Use
  Company Number: PHHY2011US61474

PATIENT
  Sex: Female

DRUGS (3)
  1. LISINOPRIL [Concomitant]
     Indication: BLOOD PRESSURE
  2. EXELON [Suspect]
     Route: 062
  3. NAMENDA [Concomitant]

REACTIONS (7)
  - SEPSIS [None]
  - GAIT DISTURBANCE [None]
  - URINARY TRACT INFECTION [None]
  - OVERDOSE [None]
  - ABNORMAL BEHAVIOUR [None]
  - DEHYDRATION [None]
  - WRONG TECHNIQUE IN DRUG USAGE PROCESS [None]
